FAERS Safety Report 8546872-0 (Version None)
Quarter: 2012Q3

REPORT INFORMATION
  Report Type: 
  Country: None (occurrence: None)
  Receive Date: 20120727
  Receipt Date: 20120112
  Transmission Date: 20120928
  Serious: No
  Sender: FDA-Public Use
  Company Number: US-ASTRAZENECA-2012SE02793

PATIENT
  Age: 29 Year
  Sex: Male

DRUGS (5)
  1. ESKALITH [Concomitant]
  2. ABILIFY [Concomitant]
  3. ZYPREXA [Concomitant]
  4. SEROQUEL [Suspect]
     Indication: BIPOLAR I DISORDER
     Route: 048
     Dates: start: 20060427
  5. GEODON [Concomitant]

REACTIONS (3)
  - MANIA [None]
  - DRUG DOSE OMISSION [None]
  - PARANOIA [None]
